FAERS Safety Report 15746816 (Version 2)
Quarter: 2018Q4

REPORT INFORMATION
  Report Type: Spontaneous
  Country: GB (occurrence: GB)
  Receive Date: 20181220
  Receipt Date: 20181221
  Transmission Date: 20190205
  Serious: Yes (Other)
  Sender: FDA-Public Use
  Company Number: GB-PFIZER INC-2008076750

PATIENT
  Age: 6 Year
  Sex: Female

DRUGS (3)
  1. PREDNISOLONE. [Concomitant]
     Active Substance: PREDNISOLONE
     Dates: start: 20061001, end: 20061015
  2. METHOTREXATE. [Suspect]
     Active Substance: METHOTREXATE
     Indication: POLYARTHRITIS
     Dosage: WEEKLY EVERY WEEK
     Route: 048
     Dates: start: 20061023, end: 20080410
  3. IBUPROFEN. [Concomitant]
     Active Substance: IBUPROFEN
     Dosage: UNK
     Route: 048
     Dates: start: 20080601

REACTIONS (1)
  - Juvenile idiopathic arthritis [Not Recovered/Not Resolved]

NARRATIVE: CASE EVENT DATE: 20080601
